FAERS Safety Report 25548098 (Version 2)
Quarter: 2025Q3

REPORT INFORMATION
  Report Type: Report from Study
  Country: US (occurrence: US)
  Receive Date: 20250714
  Receipt Date: 20250721
  Transmission Date: 20251020
  Serious: Yes (Hospitalization, Other)
  Sender: ABBVIE
  Company Number: US-ABBVIE-6365526

PATIENT
  Age: 24 Year
  Sex: Male

DRUGS (4)
  1. SKYRIZI [Suspect]
     Active Substance: RISANKIZUMAB-RZAA
     Indication: Crohn^s disease
     Dosage: STRENGTH;360MG/2.4ML?WEEK 12
     Route: 058
     Dates: start: 20250207
  2. SKYRIZI [Suspect]
     Active Substance: RISANKIZUMAB-RZAA
     Indication: Crohn^s disease
     Route: 042
     Dates: start: 20241101, end: 20241101
  3. SKYRIZI [Suspect]
     Active Substance: RISANKIZUMAB-RZAA
     Indication: Crohn^s disease
     Route: 042
     Dates: start: 20241129, end: 20241129
  4. SKYRIZI [Suspect]
     Active Substance: RISANKIZUMAB-RZAA
     Indication: Crohn^s disease
     Route: 042
     Dates: start: 20250108, end: 20250108

REACTIONS (18)
  - Kidney infection [Unknown]
  - Sepsis [Unknown]
  - Cystitis [Recovering/Resolving]
  - Dysuria [Recovered/Resolved]
  - Chills [Recovered/Resolved]
  - Hyperhidrosis [Recovered/Resolved]
  - Pain [Recovered/Resolved]
  - Pallor [Recovered/Resolved]
  - Dysuria [Recovered/Resolved]
  - Vomiting [Recovered/Resolved]
  - Rectal haemorrhage [Unknown]
  - Decreased appetite [Unknown]
  - Abdominal distension [Not Recovered/Not Resolved]
  - Diarrhoea [Not Recovered/Not Resolved]
  - Haematochezia [Unknown]
  - Urinary tract infection [Unknown]
  - Pyrexia [Recovered/Resolved]
  - Rectal ulcer [Unknown]

NARRATIVE: CASE EVENT DATE: 20250701
